FAERS Safety Report 9342420 (Version 1)
Quarter: 2013Q2

REPORT INFORMATION
  Report Type: Report from Study
  Country: BR (occurrence: BR)
  Receive Date: 20130611
  Receipt Date: 20130611
  Transmission Date: 20140414
  Serious: Yes (Other)
  Sender: FDA-Public Use
  Company Number: BR-EISAI INC-E2020-12437-SOL-BR

PATIENT
  Sex: Female
  Weight: 43 kg

DRUGS (5)
  1. DONEPEZIL [Suspect]
     Indication: DEMENTIA ALZHEIMER^S TYPE
     Dosage: ERANZ
     Route: 048
     Dates: start: 201212
  2. DONEPEZIL [Suspect]
     Dosage: DONEPEZIL HCL PROVIDED BY GOVERMENT- DOSE UNKNOWN
     Route: 048
  3. DONEPEZIL [Suspect]
     Dosage: ERANZ - DOSE UNKNOWN
     Dates: start: 2013
  4. ATENOLOL [Concomitant]
     Indication: HYPERTENSION
     Dosage: 1 TABLET OR CAPSULE OF 25 MG
     Route: 048
  5. CORUS H [Concomitant]
     Indication: HYPERTENSION
     Dosage: 1 TABLET OR CAPSULE
     Route: 048

REACTIONS (2)
  - Delirium [Unknown]
  - Confusional state [Unknown]
